FAERS Safety Report 11719252 (Version 1)
Quarter: 2015Q4

REPORT INFORMATION
  Report Type: Spontaneous
  Country: US (occurrence: None)
  Receive Date: 20151109
  Receipt Date: 20151109
  Transmission Date: 20160304
  Serious: Yes (Life-Threatening, Hospitalization)
  Sender: FDA-Public Use
  Company Number: None

PATIENT
  Age: 61 Year
  Sex: Male
  Weight: 94.1 kg

DRUGS (1)
  1. ALLOPURINOL. [Suspect]
     Active Substance: ALLOPURINOL
     Indication: GOUT
     Route: 048
     Dates: start: 20150624, end: 20150914

REACTIONS (6)
  - Lip exfoliation [None]
  - Stevens-Johnson syndrome [None]
  - Skin lesion [None]
  - Eye discharge [None]
  - Toxic epidermal necrolysis [None]
  - Rash [None]

NARRATIVE: CASE EVENT DATE: 20150911
